FAERS Safety Report 25226432 (Version 1)
Quarter: 2025Q2

REPORT INFORMATION
  Report Type: Spontaneous
  Country: US (occurrence: US)
  Receive Date: 20250422
  Receipt Date: 20250422
  Transmission Date: 20250716
  Serious: No
  Sender: BAUSCH AND LOMB
  Company Number: US-BAUSCHBL-2025BNL006641

PATIENT
  Age: 67 Year
  Sex: Male

DRUGS (2)
  1. MIEBO [Suspect]
     Active Substance: PERFLUOROHEXYLOCTANE
     Indication: Dry eye
     Dosage: 1 GTT QID (1 DROP INTO EACH EYE FOUR TIMES PER DAY, FOR ABOUT 4 MONTHS
     Route: 047
  2. MIEBO [Suspect]
     Active Substance: PERFLUOROHEXYLOCTANE
     Route: 047

REACTIONS (9)
  - Lacrimation increased [Not Recovered/Not Resolved]
  - Condition aggravated [Not Recovered/Not Resolved]
  - Visual impairment [Unknown]
  - Vision blurred [Unknown]
  - Patient dissatisfaction with treatment [Unknown]
  - Product dose omission in error [Unknown]
  - Product delivery mechanism issue [Unknown]
  - Product complaint [Unknown]
  - Product use complaint [Unknown]
